FAERS Safety Report 4646104-X (Version None)
Quarter: 2005Q2

REPORT INFORMATION
  Report Type: 
  Country: None (occurrence: None)
  Receive Date: 20050425
  Receipt Date: 20050412
  Transmission Date: 20051028
  Serious: Yes (Hospitalization)
  Sender: FDA-Public Use
  Company Number: 2005057999

PATIENT
  Age: 12 Year
  Sex: 0
  Weight: 42.7 kg

DRUGS (2)
  1. DOXYCYCLINE [Suspect]
     Indication: ACNE
     Dosage: ORAL
     Route: 048
     Dates: start: 20041001, end: 20041101
  2. LEVETIRACETAM [Suspect]
     Indication: CONVULSION
     Dosage: 550 MG (250 MG, 2 IN 1 D), ORAL
     Route: 048
     Dates: start: 20031001, end: 20041101

REACTIONS (2)
  - DYSPHONIA [None]
  - HYPERSENSITIVITY [None]
